FAERS Safety Report 11233042 (Version 3)
Quarter: 2015Q3

REPORT INFORMATION
  Report Type: Spontaneous
  Country: US (occurrence: US)
  Receive Date: 20150701
  Receipt Date: 20150930
  Transmission Date: 20151125
  Serious: No
  Sender: FDA-Public Use
  Company Number: ALCN2015US004216

PATIENT
  Sex: Female

DRUGS (2)
  1. TEARS NATURALE II POLYQUAD [Suspect]
     Active Substance: DEXTRAN 70\HYPROMELLOSE 2910 (4000 MPA.S)
     Dosage: 1 GTT, QD
  2. TEARS NATURALE II POLYQUAD [Suspect]
     Active Substance: DEXTRAN 70\HYPROMELLOSE 2910 (4000 MPA.S)
     Indication: DRY EYE
     Dosage: 1 GTT, QD
     Route: 047

REACTIONS (1)
  - Drug ineffective [Recovered/Resolved]
